FAERS Safety Report 13650344 (Version 3)
Quarter: 2019Q1

REPORT INFORMATION
  Report Type: Report from Study
  Country: MY (occurrence: MY)
  Receive Date: 20170614
  Receipt Date: 20190218
  Transmission Date: 20190417
  Serious: Yes (Death)
  Sender: FDA-Public Use
  Company Number: PHHY2017MY087366

PATIENT
  Age: 71 Year
  Sex: Male

DRUGS (1)
  1. GLIVEC [Suspect]
     Active Substance: IMATINIB MESYLATE
     Indication: GASTROINTESTINAL STROMAL TUMOUR
     Dosage: 400 MG, UNK
     Route: 048
     Dates: start: 20140821, end: 20170515

REACTIONS (11)
  - Urosepsis [Fatal]
  - Hydronephrosis [Fatal]
  - Gastrointestinal stromal tumour [Fatal]
  - Urinary tract obstruction [Fatal]
  - Hydroureter [Fatal]
  - Haemoglobin decreased [Unknown]
  - Urinary retention [Fatal]
  - Septic shock [Fatal]
  - Malignant neoplasm progression [Fatal]
  - Salmonella bacteraemia [Fatal]
  - Acute kidney injury [Fatal]

NARRATIVE: CASE EVENT DATE: 201703
